FAERS Safety Report 14267055 (Version 1)
Quarter: 2017Q4

REPORT INFORMATION
  Report Type: Spontaneous
  Country: US (occurrence: None)
  Receive Date: 20171208
  Receipt Date: 20171208
  Transmission Date: 20180321
  Serious: No
  Sender: FDA-Public Use
  Company Number: None

PATIENT
  Age: 58 Year
  Sex: Female

DRUGS (1)
  1. RIBAVIRIN TAB 200MG [Suspect]
     Active Substance: RIBAVIRIN

REACTIONS (5)
  - Alopecia [None]
  - Drug dose omission [None]
  - Vision blurred [None]
  - Fatigue [None]
  - Skin discolouration [None]

NARRATIVE: CASE EVENT DATE: 20171201
